FAERS Safety Report 5086163-6 (Version None)
Quarter: 2006Q3

REPORT INFORMATION
  Report Type: 
  Country: None (occurrence: None)
  Receive Date: 20060818
  Receipt Date: 20060807
  Transmission Date: 20061208
  Serious: Yes (Hospitalization)
  Sender: FDA-Public Use
  Company Number: 2006096764

PATIENT
  Sex: Female

DRUGS (3)
  1. AMLODIPINE [Suspect]
     Indication: HYPERTENSION
     Dosage: UNKNOWN (5 MG, UNKNOWN) ORAL
     Route: 048
  2. BETA BLOCKING AGENTS [Concomitant]
  3. AMLODIPINE [Concomitant]

REACTIONS (5)
  - DYSGEUSIA [None]
  - DYSPHAGIA [None]
  - FALL [None]
  - PHARMACEUTICAL PRODUCT COMPLAINT [None]
  - THERAPEUTIC RESPONSE UNEXPECTED WITH DRUG SUBSTITUTION [None]
